FAERS Safety Report 8920498 (Version 2)
Quarter: 2013Q1

REPORT INFORMATION
  Report Type: Spontaneous
  Country: US (occurrence: US)
  Receive Date: 20121122
  Receipt Date: 20130125
  Transmission Date: 20140127
  Serious: No
  Sender: FDA-Public Use
  Company Number: US-009507513-1211USA006674

PATIENT
  Age: 76 Year
  Sex: Female

DRUGS (8)
  1. EMEND [Suspect]
     Indication: PROPHYLAXIS OF NAUSEA AND VOMITING
     Dosage: 125 MG ON DAY 1 AND 80 MG ON DAYS 2 AND 3
     Route: 048
     Dates: start: 20121112
  2. EMEND [Suspect]
     Dosage: 125 MG ON DAY 1 AND 80 MG ON DAYS 2 AND 3
     Route: 048
     Dates: start: 20121015
  3. EMEND [Suspect]
     Indication: PROPHYLAXIS OF NAUSEA AND VOMITING
     Dosage: 125 MG ON DAY 1 AND 80 MG ON DAYS 2 AND 3
     Route: 048
     Dates: start: 20121016
  4. ONDANSETRON HYDROCHLORIDE [Concomitant]
  5. PROZAC [Concomitant]
  6. RAMIPRIL [Concomitant]
  7. METOPROLOL [Concomitant]
  8. CLOPIDOGREL [Concomitant]

REACTIONS (5)
  - Tremor [Recovering/Resolving]
  - Nausea [Recovering/Resolving]
  - Inappropriate schedule of drug administration [Unknown]
  - Drug dose omission [Unknown]
  - Product packaging quantity issue [Unknown]
